FAERS Safety Report 7827063-5 (Version None)
Quarter: 2011Q4

REPORT INFORMATION
  Report Type: 
  Country: None (occurrence: None)
  Receive Date: 20111020
  Receipt Date: 20111013
  Transmission Date: 20120403
  Serious: Yes (Death, Life-Threatening, Hospitalization, Disabling, Other)
  Sender: FDA-Public Use
  Company Number: FR-ASTELLAS-2011EU005695

PATIENT
  Sex: Female
  Weight: 65 kg

DRUGS (7)
  1. MYCOPHENOLATE MOFETIL (CELLCEPT) [Concomitant]
     Indication: IMMUNOSUPPRESSION
     Dosage: 1 G, UNKNOWN/D
     Route: 042
     Dates: start: 20110805, end: 20110817
  2. NOREPINEPHRINE BITARTRATE [Concomitant]
     Indication: SEPTIC SHOCK
     Dosage: 1 UNK, UNK
     Route: 042
     Dates: start: 20110730, end: 20110817
  3. MYCAMINE [Suspect]
     Indication: FUNGAL INFECTION
     Dosage: 50 MG, UID/QD
     Route: 042
     Dates: start: 20110730, end: 20110812
  4. PIPERACILLIN AND TAZOBACTAM [Concomitant]
     Indication: SEPTIC SHOCK
     Dosage: 12 G, UNKNOWN/D
     Route: 042
     Dates: start: 20110730, end: 20110817
  5. LEVOFLOXACIN [Concomitant]
     Indication: PNEUMONIA
     Dosage: 500 MG, UNKNOWN/D
     Route: 042
     Dates: start: 20110730, end: 20110817
  6. SOLU-MEDROL [Concomitant]
     Indication: ACUTE RESPIRATORY DISTRESS SYNDROME
     Dosage: 160 MG, UNKNOWN/D
     Route: 042
     Dates: start: 20110730, end: 20110817
  7. SOLU-MEDROL [Concomitant]
     Indication: GRAFT VERSUS HOST DISEASE

REACTIONS (4)
  - GRAFT VERSUS HOST DISEASE [None]
  - BRONCHOPULMONARY ASPERGILLOSIS [None]
  - ENTEROCOCCAL SEPSIS [None]
  - CAPILLARY LEAK SYNDROME [None]
